FAERS Safety Report 6217163-8 (Version None)
Quarter: 2009Q2

REPORT INFORMATION
  Report Type: 
  Country: None (occurrence: None)
  Receive Date: 20090606
  Receipt Date: 20090601
  Transmission Date: 20091009
  Serious: Yes (Other)
  Sender: FDA-Public Use
  Company Number: PHEH2009US05520

PATIENT
  Age: 52 Year
  Sex: Female

DRUGS (8)
  1. TEGRETOL-XR [Suspect]
     Indication: GRAND MAL CONVULSION
     Dosage: 1000 MG, BID
  2. TEGRETOL-XR [Interacting]
     Indication: COMPLEX PARTIAL SEIZURES
  3. LIPITOR [Interacting]
     Indication: LOW DENSITY LIPOPROTEIN INCREASED
     Dosage: 40 MG, QD
     Dates: start: 20050101, end: 20080101
  4. LIPITOR [Interacting]
     Dosage: 20 MG, QD
     Dates: start: 20080101, end: 20090101
  5. LIPITOR [Interacting]
     Dosage: NO TREATMENT
     Dates: end: 20090401
  6. LIPITOR [Interacting]
     Dosage: 40 MG, QD
     Dates: start: 20090422, end: 20090514
  7. ATENOLOL [Concomitant]
     Dosage: 25 MG, UNK
  8. THYROID TAB [Concomitant]
     Dosage: 15 MG, UNK

REACTIONS (12)
  - COMPLEX PARTIAL SEIZURES [None]
  - CONSTIPATION [None]
  - CONVULSION [None]
  - DRUG INTERACTION [None]
  - HYPERSOMNIA [None]
  - HYPERTENSION [None]
  - HYPOTENSION [None]
  - LOW DENSITY LIPOPROTEIN INCREASED [None]
  - MYOCARDIAL INFARCTION [None]
  - SPEECH DISORDER [None]
  - THERAPEUTIC AGENT TOXICITY [None]
  - WEIGHT INCREASED [None]
